FAERS Safety Report 12736819 (Version 5)
Quarter: 2016Q4

REPORT INFORMATION
  Report Type: Spontaneous
  Country: IT (occurrence: IT)
  Receive Date: 20160913
  Receipt Date: 20161202
  Transmission Date: 20170207
  Serious: Yes (Hospitalization)
  Sender: FDA-Public Use
  Company Number: IT-ROCHE-1829637

PATIENT
  Age: 66 Year
  Sex: Female

DRUGS (9)
  1. FOLINA (ITALY) [Concomitant]
  2. TICLOPIDINE [Concomitant]
     Active Substance: TICLOPIDINE
  3. ROCALTROL [Concomitant]
     Active Substance: CALCITRIOL
  4. ROACTEMRA [Suspect]
     Active Substance: TOCILIZUMAB
     Dosage: DRUG WAS RESTARTED ON AN UNKNOWN DATE
     Route: 058
     Dates: end: 20160606
  5. OMEPRAZOLE. [Concomitant]
     Active Substance: OMEPRAZOLE
  6. EPREX [Concomitant]
     Active Substance: ERYTHROPOIETIN
  7. ROACTEMRA [Suspect]
     Active Substance: TOCILIZUMAB
     Indication: RHEUMATOID ARTHRITIS
     Dosage: TOCILIZUMAB WAS INTERRUPTED ON 15/FEB/2016
     Route: 058
     Dates: start: 20151201, end: 20160215
  8. DEFLAN [Concomitant]
     Active Substance: DEFLAZACORT
  9. DIFLUCAN [Concomitant]
     Active Substance: FLUCONAZOLE

REACTIONS (5)
  - Cough [Recovered/Resolved]
  - Laryngospasm [Recovered/Resolved]
  - Cough [Recovered/Resolved]
  - Herpes zoster [Recovered/Resolved]
  - Dyspnoea [Recovered/Resolved]

NARRATIVE: CASE EVENT DATE: 20160222
